FAERS Safety Report 18241574 (Version 1)
Quarter: 2020Q3

REPORT INFORMATION
  Report Type: Spontaneous
  Country: IT (occurrence: IT)
  Receive Date: 20200908
  Receipt Date: 20200908
  Transmission Date: 20201103
  Serious: Yes (Other)
  Sender: FDA-Public Use
  Company Number: IT-ASTRAZENECA-2020SF13488

PATIENT
  Age: 74 Year
  Sex: Male

DRUGS (4)
  1. QUETIAPINE. [Suspect]
     Active Substance: QUETIAPINE
     Route: 048
  2. DEPAKIN [Suspect]
     Active Substance: VALPROATE SODIUM
     Route: 065
  3. TALOFEN [Suspect]
     Active Substance: PROMAZINE HYDROCHLORIDE
     Route: 065
  4. FLUVOXAMINE [Suspect]
     Active Substance: FLUVOXAMINE
     Route: 065

REACTIONS (1)
  - Respiratory fatigue [Unknown]

NARRATIVE: CASE EVENT DATE: 20200530
